FAERS Safety Report 5716959-6 (Version None)
Quarter: 2008Q2

REPORT INFORMATION
  Report Type: 
  Country: None (occurrence: None)
  Receive Date: 20080424
  Receipt Date: 20080414
  Transmission Date: 20081010
  Serious: Yes (Hospitalization)
  Sender: FDA-Public Use
  Company Number: PL-MERCK-0804POL00013

PATIENT
  Age: 9 Year
  Sex: Male
  Weight: 30 kg

DRUGS (4)
  1. SINGULAIR [Suspect]
     Indication: ASTHMA
     Route: 048
     Dates: start: 20070202, end: 20080301
  2. BUDESONIDE [Concomitant]
     Indication: ASTHMA
     Dates: start: 20070201
  3. BUDESONIDE [Concomitant]
     Dates: start: 20070201
  4. FORMOTEROL FUMARATE [Concomitant]
     Indication: ASTHMA
     Dates: start: 20070201

REACTIONS (3)
  - ABDOMINAL PAIN [None]
  - DIABETES MELLITUS [None]
  - PANCREATITIS [None]
